FAERS Safety Report 9580398 (Version 1)
Quarter: 2013Q3

REPORT INFORMATION
  Report Type: Spontaneous
  Country: US (occurrence: None)
  Receive Date: 20130916
  Receipt Date: 20130916
  Transmission Date: 20140515
  Serious: Yes (Other)
  Sender: FDA-Public Use
  Company Number: JPI-P-029225

PATIENT
  Age: 68 Year
  Sex: Male
  Weight: 95.26 kg

DRUGS (10)
  1. XYREM [Suspect]
     Indication: NARCOLEPSY
     Route: 048
     Dates: start: 201008
  2. XYREM [Suspect]
     Indication: SOMNOLENCE
     Route: 048
     Dates: start: 201008
  3. XYREM [Suspect]
     Route: 048
     Dates: start: 201008
  4. LITHIUM [Concomitant]
  5. BUPROPION [Concomitant]
  6. HYDROXYZINE [Concomitant]
  7. METOPROLOL SUCCINATE [Concomitant]
  8. ROSUVASTATIN [Concomitant]
  9. MULTIPLE SUPPLEMENTS [Concomitant]
  10. METFORMIN [Concomitant]

REACTIONS (6)
  - Suicidal ideation [None]
  - Weight decreased [None]
  - Insomnia [None]
  - Asthenia [None]
  - Mental impairment [None]
  - Nightmare [None]
